FAERS Safety Report 4643026-5 (Version None)
Quarter: 2005Q2

REPORT INFORMATION
  Report Type: 
  Country: None (occurrence: None)
  Receive Date: 20050421
  Receipt Date: 20050408
  Transmission Date: 20051028
  Serious: Yes (Death)
  Sender: FDA-Public Use
  Company Number: 2005007008

PATIENT
  Age: 37 Year
  Sex: Male
  Weight: 79 kg

DRUGS (2)
  1. IRINOTECAN HCL [Suspect]
     Indication: GASTRIC CANCER
     Dosage: 280 MG (INTERMITTENT), INTRAVENOUS
     Route: 042
     Dates: start: 20021023, end: 20030212
  2. MITOMYCIN [Concomitant]

REACTIONS (12)
  - ANOREXIA [None]
  - BLOOD BETA-D-GLUCAN INCREASED [None]
  - CARDIAC FAILURE [None]
  - CYTOMEGALOVIRUS ANTIBODY POSITIVE [None]
  - INTERSTITIAL LUNG DISEASE [None]
  - LYMPHANGIOSIS CARCINOMATOSA [None]
  - NAUSEA [None]
  - PLATELET COUNT DECREASED [None]
  - PLEURAL EFFUSION [None]
  - PNEUMONIA FUNGAL [None]
  - PULMONARY OEDEMA [None]
  - WHITE BLOOD CELL COUNT DECREASED [None]
